FAERS Safety Report 11167157 (Version 4)
Quarter: 2015Q3

REPORT INFORMATION
  Report Type: Report from Study
  Country: JP (occurrence: JP)
  Receive Date: 20150605
  Receipt Date: 20150708
  Transmission Date: 20151125
  Serious: No
  Sender: FDA-Public Use
  Company Number: JP-PFIZER INC-2015183787

PATIENT
  Age: 63 Year
  Sex: Male
  Weight: 51 kg

DRUGS (7)
  1. METHOTREXATE [Concomitant]
     Active Substance: METHOTREXATE
     Dosage: 8 MG, WEEKLY
     Dates: start: 20140421
  2. PREDONINE [Concomitant]
     Active Substance: PREDNISOLONE\PREDNISOLONE ACETATE\PREDNISOLONE SODIUM SUCCINATE
     Dosage: 20 MG, DAILY
     Dates: start: 20150528
  3. METHOTREXATE [Concomitant]
     Active Substance: METHOTREXATE
     Dosage: 4 MG, WEEKLY
     Dates: start: 20120215
  4. METHOTREXATE [Concomitant]
     Active Substance: METHOTREXATE
     Dosage: 12 MG, WEEKLY
     Dates: start: 20140519
  5. PREDONINE [Concomitant]
     Active Substance: PREDNISOLONE\PREDNISOLONE ACETATE\PREDNISOLONE SODIUM SUCCINATE
     Dosage: 15 MG, DAILY
     Dates: start: 20131125
  6. XELJANZ [Suspect]
     Active Substance: TOFACITINIB CITRATE
     Indication: RHEUMATOID ARTHRITIS
     Dosage: 10 MG, DAILY
     Route: 048
     Dates: start: 20150509, end: 20150513
  7. PREDONINE [Concomitant]
     Active Substance: PREDNISOLONE\PREDNISOLONE ACETATE\PREDNISOLONE SODIUM SUCCINATE
     Dosage: 3 MG, DAILY
     Dates: start: 20120206

REACTIONS (1)
  - Hypersensitivity [Recovered/Resolved]

NARRATIVE: CASE EVENT DATE: 20150514
